FAERS Safety Report 10154112 (Version 1)
Quarter: 2014Q2

REPORT INFORMATION
  Report Type: Spontaneous
  Country: US (occurrence: None)
  Receive Date: 20140502
  Receipt Date: 20140502
  Transmission Date: 20141212
  Serious: Yes (Hospitalization, Other)
  Sender: FDA-Public Use
  Company Number: UTC-047593

PATIENT
  Age: 21 Year
  Sex: Male
  Weight: 67.58 kg

DRUGS (1)
  1. REMODULIN (5 MILLIGRAM/MILLILITERS, INJECTION FOR INFUSION (TREPROSTINIL SODIUM) [Suspect]
     Indication: PULMONARY ARTERIAL HYPERTENSION
     Dosage: 115.2 UG/KG (0.08 UG/KG, 1 IN 1MIN), INTRAVENOUS DRIP
     Route: 041

REACTIONS (3)
  - Oxygen consumption decreased [None]
  - Vomiting [None]
  - Convulsion [None]
